FAERS Safety Report 8606678-0 (Version None)
Quarter: 2012Q3

REPORT INFORMATION
  Report Type: 
  Country: None (occurrence: None)
  Receive Date: 20120820
  Receipt Date: 20120806
  Transmission Date: 20120928
  Serious: Yes (Hospitalization)
  Sender: FDA-Public Use
  Company Number: ZA-ELI_LILLY_AND_COMPANY-ZA201208004185

PATIENT
  Sex: Female

DRUGS (8)
  1. LANTUS [Concomitant]
     Dosage: 34 U, EACH EVENING
     Route: 058
     Dates: start: 20070101
  2. SIMVASTATIN [Concomitant]
     Dosage: 1 DF, EACH EVENING
     Route: 048
     Dates: start: 20070101
  3. HUMALOG [Suspect]
     Indication: TYPE 2 DIABETES MELLITUS
     Dosage: 24 U, EACH MORNING
     Route: 058
     Dates: start: 20070101
  4. HUMALOG [Suspect]
     Dosage: 30 U, EACH EVENING
     Route: 058
     Dates: start: 20070101
  5. HUMALOG [Suspect]
     Dosage: 28 U, QD
     Route: 058
     Dates: start: 20070101
  6. ASPIRIN [Concomitant]
     Dosage: 100 MG, QD
     Route: 048
     Dates: start: 20070101
  7. PREXUM [Concomitant]
     Dosage: 1 DF, EACH EVENING
     Route: 048
     Dates: start: 20120725
  8. GLUCOPHAGE [Concomitant]
     Dosage: 500 MG, BID
     Route: 048
     Dates: start: 20070101

REACTIONS (1)
  - CAROTID ARTERY BYPASS [None]
